FAERS Safety Report 10537526 (Version 1)
Quarter: 2014Q4

REPORT INFORMATION
  Report Type: Spontaneous
  Country: US (occurrence: None)
  Receive Date: 20141022
  Receipt Date: 20141022
  Transmission Date: 20150529
  Serious: No
  Sender: FDA-Public Use
  Company Number: None

PATIENT
  Age: 52 Year
  Sex: Female

DRUGS (7)
  1. HYDROCHLOROTHIAZIDE. [Concomitant]
     Active Substance: HYDROCHLOROTHIAZIDE
  2. SETRALINE 100MG [Concomitant]
     Active Substance: SERTRALINE HYDROCHLORIDE
  3. CYANOCOBALAMIN. [Concomitant]
     Active Substance: CYANOCOBALAMIN
  4. SUMATRIPTAN. [Concomitant]
     Active Substance: SUMATRIPTAN
  5. BUPROPION [Concomitant]
     Active Substance: BUPROPION
  6. LISINOPRIL. [Concomitant]
     Active Substance: LISINOPRIL
  7. AMPYRA [Suspect]
     Active Substance: DALFAMPRIDINE
     Indication: MULTIPLE SYSTEM ATROPHY
     Dosage: 10 MG EVERY 12 HOURS ORAL
     Route: 048
     Dates: start: 201401

REACTIONS (3)
  - Nocturia [None]
  - Ataxia [None]
  - Pollakiuria [None]

NARRATIVE: CASE EVENT DATE: 20141007
